FAERS Safety Report 10249426 (Version 1)
Quarter: 2014Q2

REPORT INFORMATION
  Report Type: Report from Study
  Country: US (occurrence: US)
  Receive Date: 20140620
  Receipt Date: 20140620
  Transmission Date: 20141212
  Serious: Yes (Hospitalization)
  Sender: FDA-Public Use
  Company Number: US-JNJFOC-20140610664

PATIENT
  Age: 44 Year
  Sex: Female

DRUGS (2)
  1. REMICADE [Suspect]
     Indication: PRODUCT USED FOR UNKNOWN INDICATION
     Route: 042
  2. SIMPONI ARIA [Suspect]
     Indication: PSORIASIS
     Route: 042
     Dates: start: 20140523

REACTIONS (3)
  - Thrombosis [Unknown]
  - Sepsis [Unknown]
  - Heart rate decreased [Unknown]
